FAERS Safety Report 17054127 (Version 2)
Quarter: 2020Q1

REPORT INFORMATION
  Report Type: Spontaneous
  Country: US (occurrence: US)
  Receive Date: 20191120
  Receipt Date: 20200106
  Transmission Date: 20200409
  Serious: Yes (Hospitalization)
  Sender: FDA-Public Use
  Company Number: US-OTSUKA-2018_023759

PATIENT

DRUGS (3)
  1. ARIPIPRAZOLE. [Concomitant]
     Active Substance: ARIPIPRAZOLE
     Indication: PRODUCT USED FOR UNKNOWN INDICATION
     Dosage: UNK
     Route: 065
     Dates: start: 20160328, end: 20161122
  2. ABILIFY [Suspect]
     Active Substance: ARIPIPRAZOLE
     Indication: MAJOR DEPRESSION
     Dosage: 5-30 MG, QD
     Route: 065
     Dates: start: 20080201, end: 20180201
  3. ABILIFY [Suspect]
     Active Substance: ARIPIPRAZOLE
     Indication: POST-TRAUMATIC STRESS DISORDER

REACTIONS (7)
  - Obsessive-compulsive disorder [Unknown]
  - Compulsive shopping [Not Recovered/Not Resolved]
  - Economic problem [Unknown]
  - Product use in unapproved indication [Unknown]
  - Mental disorder [Unknown]
  - Injury [Unknown]
  - Homeless [Unknown]

NARRATIVE: CASE EVENT DATE: 20080201
